FAERS Safety Report 25901746 (Version 1)
Quarter: 2025Q4

REPORT INFORMATION
  Report Type: Report from Study
  Country: PH (occurrence: PH)
  Receive Date: 20251009
  Receipt Date: 20251009
  Transmission Date: 20260117
  Serious: No
  Sender: JOHNSON AND JOHNSON
  Company Number: PH-JNJFOC-20251004875

PATIENT
  Age: 3 Decade

DRUGS (4)
  1. TREMFYA [Suspect]
     Active Substance: GUSELKUMAB
     Indication: Psoriasis
     Route: 058
     Dates: start: 202407, end: 202503
  2. ImmunPro [Concomitant]
     Indication: Vitamin supplementation
     Route: 048
  3. ImmunPro [Concomitant]
     Indication: Mineral supplementation
  4. Citrizine [Concomitant]
     Indication: Pruritus
     Route: 048

REACTIONS (3)
  - Aspartate aminotransferase increased [Recovering/Resolving]
  - Alanine aminotransferase increased [Recovering/Resolving]
  - Off label use [Unknown]
